FAERS Safety Report 22847209 (Version 2)
Quarter: 2023Q4

REPORT INFORMATION
  Report Type: Spontaneous
  Country: IT (occurrence: IT)
  Receive Date: 20230822
  Receipt Date: 20231123
  Transmission Date: 20240109
  Serious: Yes (Hospitalization, Other)
  Sender: FDA-Public Use
  Company Number: IT-TEVA-2023-IT-2917193

PATIENT
  Age: 73 Year
  Sex: Male
  Weight: 59 kg

DRUGS (12)
  1. CISPLATIN [Suspect]
     Active Substance: CISPLATIN
     Indication: Cholangiocarcinoma
     Dosage: 40.8 MG DAYS 1 AND 8, EVERY 3 WEEKS
     Route: 042
     Dates: start: 20230413, end: 20230601
  2. CISPLATIN [Suspect]
     Active Substance: CISPLATIN
     Dosage: LAST DOSES PRIOR TO THE EVENTS: 13-JUL-2023
     Route: 042
     Dates: start: 20230615
  3. GEMCITABINE [Suspect]
     Active Substance: GEMCITABINE
     Indication: Cholangiocarcinoma
     Dosage: 1630 MG DAYS 1 AND 8, EVERY 3 WEEKS
     Route: 042
     Dates: start: 20230413, end: 20230601
  4. GEMCITABINE [Suspect]
     Active Substance: GEMCITABINE
     Dosage: LAST DOSES PRIOR TO THE EVENTS: 13-JUL-2023
     Route: 042
     Dates: start: 20230615
  5. METFORMIN [Concomitant]
     Active Substance: METFORMIN HYDROCHLORIDE
     Indication: Product used for unknown indication
     Dosage: END DATE: ONGOING
     Dates: start: 2000
  6. GLICLAZIDE [Concomitant]
     Active Substance: GLICLAZIDE
     Indication: Product used for unknown indication
     Dosage: END DATE: ONGOING
     Dates: start: 2000
  7. IRBESARTAN [Concomitant]
     Active Substance: IRBESARTAN
     Indication: Product used for unknown indication
     Dosage: END DATE: ONGOING
     Dates: start: 2000
  8. EMPAGLIFLOZIN [Concomitant]
     Active Substance: EMPAGLIFLOZIN
     Indication: Product used for unknown indication
     Dosage: END DATE: ONGOING
     Dates: start: 2000
  9. LINAGLIPTIN [Concomitant]
     Active Substance: LINAGLIPTIN
     Indication: Product used for unknown indication
     Dates: start: 2000, end: 20230704
  10. SIMVASTATIN [Concomitant]
     Active Substance: SIMVASTATIN
     Indication: Product used for unknown indication
     Dosage: END DATE: ONGOING
     Dates: start: 2000
  11. ALLOPURINOL [Concomitant]
     Active Substance: ALLOPURINOL
     Indication: Product used for unknown indication
     Dosage: END DATE: ONGOING
     Dates: start: 2000
  12. RIFAXIMIN [Concomitant]
     Active Substance: RIFAXIMIN
     Indication: Product used for unknown indication
     Dosage: END DATE: ONGOING
     Dates: start: 2018

REACTIONS (5)
  - Pneumonia legionella [Recovering/Resolving]
  - Pyrexia [Recovered/Resolved]
  - Asthenia [Recovered/Resolved]
  - Anaemia [Unknown]
  - Lymphopenia [Unknown]

NARRATIVE: CASE EVENT DATE: 20230101
